FAERS Safety Report 25457040 (Version 1)
Quarter: 2025Q2

REPORT INFORMATION
  Report Type: Spontaneous
  Country: US (occurrence: US)
  Receive Date: 20250619
  Receipt Date: 20250619
  Transmission Date: 20250716
  Serious: No
  Sender: SANOFI AVENTIS
  Company Number: US-SA-2025SA172860

PATIENT
  Sex: Male
  Weight: 13.64 kg

DRUGS (1)
  1. DUPIXENT [Suspect]
     Active Substance: DUPILUMAB
     Indication: Illness
     Dosage: 200 MG, Q4W

REACTIONS (3)
  - Diarrhoea [Unknown]
  - Hypersensitivity [Unknown]
  - Eczema [Unknown]
